FAERS Safety Report 13538841 (Version 4)
Quarter: 2022Q2

REPORT INFORMATION
  Report Type: Spontaneous
  Country: US (occurrence: US)
  Receive Date: 20170512
  Receipt Date: 20220528
  Transmission Date: 20220721
  Serious: Yes (Other)
  Sender: FDA-Public Use
  Company Number: US-JNJFOC-20170315923

PATIENT
  Age: 20 Year
  Sex: Male

DRUGS (6)
  1. INVEGA [Suspect]
     Active Substance: PALIPERIDONE
     Indication: Schizophrenia
     Route: 048
     Dates: start: 20130329, end: 20130404
  2. ZOCOR [Suspect]
     Active Substance: SIMVASTATIN
     Dates: start: 2013
  3. ZOLPIDEM [Suspect]
     Active Substance: ZOLPIDEM TARTRATE
     Dates: start: 2013
  4. TRILEPTAL [Suspect]
     Active Substance: OXCARBAZEPINE
     Dates: start: 2013
  5. ABILIFY [Concomitant]
     Active Substance: ARIPIPRAZOLE
     Dates: start: 2013
  6. HALDOL                             /00027401/ [Concomitant]
     Dates: start: 2013

REACTIONS (2)
  - Gynaecomastia [Unknown]
  - Emotional distress [Unknown]

NARRATIVE: CASE EVENT DATE: 20130409
